FAERS Safety Report 9513765 (Version 1)
Quarter: 2013Q3

REPORT INFORMATION
  Report Type: Spontaneous
  Country: US (occurrence: US)
  Receive Date: 20130910
  Receipt Date: 20130910
  Transmission Date: 20140515
  Serious: Yes (Hospitalization)
  Sender: FDA-Public Use
  Company Number: US-ABBOTT-13P-163-1143790-00

PATIENT
  Age: 59 Year
  Sex: Male
  Weight: 113.5 kg

DRUGS (13)
  1. ANDROGEL [Suspect]
     Indication: BLOOD TESTOSTERONE DECREASED
     Dates: start: 201307, end: 20130827
  2. HUMIRA [Suspect]
     Indication: CROHN^S DISEASE
     Dates: start: 2007
  3. NEXIUM [Concomitant]
     Indication: CROHN^S DISEASE
  4. NEXIUM [Concomitant]
     Indication: GASTROOESOPHAGEAL REFLUX DISEASE
  5. CLONAZEPAM [Concomitant]
     Indication: ANXIETY
     Dosage: 2 TABS AT BEDTIME
  6. CLONAZEPAM [Concomitant]
     Indication: INSOMNIA
  7. EFFEXOR [Concomitant]
     Indication: DEPRESSION
     Dosage: 2 TABS DAILY
  8. OXYCODONE [Concomitant]
     Indication: PAIN
  9. AVINZA [Concomitant]
     Indication: PAIN
  10. CRESTOR [Concomitant]
     Indication: BLOOD CHOLESTEROL INCREASED
  11. NORVASC [Concomitant]
     Indication: HYPERTENSION
  12. IMURAN [Concomitant]
     Indication: CROHN^S DISEASE
  13. ZYLOPRIM [Concomitant]
     Indication: CROHN^S DISEASE

REACTIONS (7)
  - Groin pain [Recovered/Resolved]
  - Thrombosis [Recovered/Resolved]
  - Drug ineffective [Not Recovered/Not Resolved]
  - Feeling abnormal [Recovering/Resolving]
  - Asthenia [Recovering/Resolving]
  - Blood testosterone decreased [Recovering/Resolving]
  - Crohn^s disease [Recovering/Resolving]
